FAERS Safety Report 7741011-8 (Version None)
Quarter: 2011Q3

REPORT INFORMATION
  Report Type: 
  Country: None (occurrence: None)
  Receive Date: 20110909
  Receipt Date: 20110606
  Transmission Date: 20111222
  Serious: No
  Sender: FDA-Public Use
  Company Number: US-BAYER-2011-048882

PATIENT
  Age: 68 Year
  Sex: Male

DRUGS (1)
  1. MAGNEVIST [Suspect]
     Indication: ANGIOGRAM
     Dosage: 20 CC, ONE TIME, RAC
     Route: 042
     Dates: start: 20110606, end: 20110606

REACTIONS (2)
  - VOMITING [None]
  - NAUSEA [None]
